FAERS Safety Report 12634365 (Version 1)
Quarter: 2016Q3

REPORT INFORMATION
  Report Type: Spontaneous
  Country: US (occurrence: US)
  Receive Date: 20160809
  Receipt Date: 20160809
  Transmission Date: 20161109
  Serious: No
  Sender: FDA-Public Use
  Company Number: US-TEVA-681895USA

PATIENT
  Sex: Female
  Weight: 51.3 kg

DRUGS (12)
  1. LANSOPRAZOLE. [Concomitant]
     Active Substance: LANSOPRAZOLE
  2. GLUCOSAMINE [Concomitant]
     Active Substance: GLUCOSAMINE
  3. COPAXONE [Suspect]
     Active Substance: GLATIRAMER ACETATE
     Indication: MULTIPLE SCLEROSIS
     Dosage: 20 MILLIGRAM DAILY;
     Route: 058
     Dates: start: 201106
  4. BENTYL [Concomitant]
     Active Substance: DICYCLOMINE HYDROCHLORIDE
  5. ESTRADIOL. [Concomitant]
     Active Substance: ESTRADIOL
  6. BACLOFEN. [Concomitant]
     Active Substance: BACLOFEN
  7. CALC GLUC [Concomitant]
  8. FLAXSEED [Concomitant]
     Active Substance: FLAX SEED
  9. VITAMIN D3 [Concomitant]
     Active Substance: CHOLECALCIFEROL
  10. MYNBETRIG [Concomitant]
  11. NITROFURANTIN [Concomitant]
     Active Substance: NITROFURANTOIN
  12. TIZANIDINE. [Concomitant]
     Active Substance: TIZANIDINE

REACTIONS (1)
  - Lipoatrophy [Unknown]
